FAERS Safety Report 11507812 (Version 1)
Quarter: 2015Q3

REPORT INFORMATION
  Report Type: Spontaneous
  Country: US (occurrence: US)
  Receive Date: 20150903
  Receipt Date: 20150903
  Transmission Date: 20151125
  Serious: No
  Sender: FDA-Public Use
  Company Number: US-ELI_LILLY_AND_COMPANY-US200909005635

PATIENT
  Age: 46 Year
  Sex: Female

DRUGS (3)
  1. HUMALOG MIX75/25 [Suspect]
     Active Substance: INSULIN LISPRO
     Dates: start: 20090923
  2. HUMALOG MIX75/25 [Suspect]
     Active Substance: INSULIN LISPRO
     Dosage: UNK, UNK
     Dates: start: 200909, end: 20090923
  3. HUMALOG MIX75/25 [Suspect]
     Active Substance: INSULIN LISPRO
     Dates: start: 200909

REACTIONS (9)
  - Drug dispensing error [Recovered/Resolved]
  - Blood glucose increased [Unknown]
  - Fatigue [Unknown]
  - Blood glucose increased [Unknown]
  - Malaise [Unknown]
  - Hypersomnia [Unknown]
  - Poor quality drug administered [Unknown]
  - Drug dose omission [Unknown]
  - Drug dispensing error [Not Recovered/Not Resolved]

NARRATIVE: CASE EVENT DATE: 200909
